FAERS Safety Report 4980891-6 (Version None)
Quarter: 2006Q2

REPORT INFORMATION
  Report Type: 
  Country: None (occurrence: None)
  Receive Date: 20060418
  Receipt Date: 20060407
  Transmission Date: 20061013
  Serious: Yes (Hospitalization)
  Sender: FDA-Public Use
  Company Number: 2006049023

PATIENT
  Age: 16 Year
  Sex: Male

DRUGS (1)
  1. ZOLOFT [Suspect]
     Indication: ILL-DEFINED DISORDER
     Dosage: 150 MG (DAILY INTERVAL: EVERY DAY), ORAL
     Route: 048

REACTIONS (1)
  - LYMPHADENOPATHY [None]
